FAERS Safety Report 13047890 (Version 1)
Quarter: 2016Q4

REPORT INFORMATION
  Report Type: Spontaneous
  Country: GB (occurrence: GB)
  Receive Date: 20161220
  Receipt Date: 20161220
  Transmission Date: 20170207
  Serious: Yes (Death, Other)
  Sender: FDA-Public Use
  Company Number: GB-CELGENEUS-GBR-2014115361

PATIENT

DRUGS (4)
  1. THALIDOMIDE [Suspect]
     Active Substance: THALIDOMIDE
     Indication: PLASMA CELL MYELOMA
     Dosage: 100 MG
     Route: 048
  2. PANOBINOSTAT [Concomitant]
     Active Substance: PANOBINOSTAT
     Indication: PLASMA CELL MYELOMA
     Dosage: 10, 15, OR 20 MG
     Route: 065
  3. DEXAMETHASONE. [Concomitant]
     Active Substance: DEXAMETHASONE
     Indication: PLASMA CELL MYELOMA
     Dosage: 20 MG
     Route: 065
  4. BORTEZOMIB [Concomitant]
     Active Substance: BORTEZOMIB
     Indication: PLASMA CELL MYELOMA
     Dosage: 1.3 MG/ M2, WEEKLY
     Route: 058

REACTIONS (45)
  - Cerebrovascular disorder [Fatal]
  - Oedema peripheral [Unknown]
  - Anaemia [Unknown]
  - Dizziness [Unknown]
  - Constipation [Unknown]
  - Dyspepsia [Unknown]
  - Sickle cell anaemia [Fatal]
  - Second primary malignancy [Fatal]
  - Blood creatinine increased [Unknown]
  - Infection [Unknown]
  - Vomiting [Unknown]
  - Bone pain [Unknown]
  - Back pain [Unknown]
  - Alanine aminotransferase increased [Unknown]
  - Cough [Unknown]
  - Agitation [Unknown]
  - Diarrhoea [Unknown]
  - Dyspnoea [Unknown]
  - Hyperglycaemia [Unknown]
  - Peripheral sensory neuropathy [Unknown]
  - Dysgeusia [Unknown]
  - Insomnia [Unknown]
  - Alopecia [Unknown]
  - Hypophosphataemia [Unknown]
  - Neutropenia [Unknown]
  - Fatigue [Unknown]
  - Upper respiratory tract infection [Unknown]
  - Tremor [Unknown]
  - Pyrexia [Unknown]
  - Hyponatraemia [Unknown]
  - Nausea [Unknown]
  - Decreased appetite [Unknown]
  - Plasma cell myeloma [Fatal]
  - Thrombocytopenia [Unknown]
  - Gastrointestinal disorder [Unknown]
  - Somnolence [Unknown]
  - Myalgia [Unknown]
  - Hypomagnesaemia [Unknown]
  - White blood cell count decreased [Unknown]
  - Gastrointestinal disorder [Fatal]
  - Rash maculo-papular [Unknown]
  - Hypocalcaemia [Unknown]
  - Sinus bradycardia [Unknown]
  - Abdominal pain [Unknown]
  - Weight decreased [Unknown]
